FAERS Safety Report 5229310-5 (Version None)
Quarter: 2007Q1

REPORT INFORMATION
  Report Type: 
  Country: None (occurrence: None)
  Receive Date: 20070131
  Receipt Date: 20070131
  Transmission Date: 20070707
  Serious: Yes (Hospitalization)
  Sender: FDA-Public Use
  Company Number: 135-010107

PATIENT
  Age: 19 Year
  Sex: Female

DRUGS (4)
  1. PROCHLORPERAZINE SUPP. 25 MG G+W LABORATORIES, INC. [Suspect]
     Indication: NAUSEA
  2. PROCHLORPERAZINE SUPP. 25 MG G+W LABORATORIES, INC. [Suspect]
     Indication: VOMITING
  3. DURICEF/TEFIDROX (500 MG) [Concomitant]
  4. HYDROCONE/VICODIN [Concomitant]

REACTIONS (6)
  - ANAPHYLACTIC REACTION [None]
  - DROOLING [None]
  - MALAISE [None]
  - NECK PAIN [None]
  - SPEECH DISORDER [None]
  - TREMOR [None]
